FAERS Safety Report 24832743 (Version 2)
Quarter: 2025Q3

REPORT INFORMATION
  Report Type: Spontaneous
  Country: US (occurrence: US)
  Receive Date: 20250110
  Receipt Date: 20250715
  Transmission Date: 20251021
  Serious: No
  Sender: INTRABIO
  Company Number: US-IBO-202400094

PATIENT
  Age: 1 Year
  Sex: Male
  Weight: 11 kg

DRUGS (3)
  1. AQNEURSA [Suspect]
     Active Substance: LEVACETYLLEUCINE
     Indication: GM2 gangliosidosis
     Route: 065
  2. AQNEURSA [Suspect]
     Active Substance: LEVACETYLLEUCINE
     Indication: GM2 gangliosidosis
     Route: 065
     Dates: start: 20250109, end: 2025
  3. AQNEURSA [Suspect]
     Active Substance: LEVACETYLLEUCINE
     Indication: GM2 gangliosidosis
     Dosage: AQNEURSA 1 GRAM SACHET??TAKE 1 GRAM BY MOUTH ONCE DAILY
     Route: 048

REACTIONS (3)
  - Dysphagia [Recovered/Resolved]
  - Off label use [Unknown]
  - Off label use [Unknown]
